FAERS Safety Report 9701260 (Version 2)
Quarter: 2013Q4

REPORT INFORMATION
  Report Type: Spontaneous
  Country: JP (occurrence: JP)
  Receive Date: 20131121
  Receipt Date: 20131205
  Transmission Date: 20140711
  Serious: Yes (Hospitalization, Other)
  Sender: FDA-Public Use
  Company Number: JP-OTSUKA-JP-2013-15369

PATIENT
  Age: 86 Year
  Sex: Female

DRUGS (13)
  1. SAMSCA [Suspect]
     Indication: HEPATIC CIRRHOSIS
     Dosage: 7.5 MG MILLIGRAM(S), DAILY DOSE
     Route: 048
     Dates: start: 20131023, end: 20131105
  2. SAMSCA [Suspect]
     Indication: GENERALISED OEDEMA
  3. SAMSCA [Suspect]
     Indication: PLEURAL EFFUSION
  4. SAMSCA [Suspect]
     Indication: ASCITES
  5. MAGMITT [Concomitant]
     Dosage: 750 MG MILLIGRAM(S), DAILY DOSE
     Route: 048
     Dates: start: 20130901, end: 20131113
  6. NORVASC [Concomitant]
     Dosage: 2.5 MG MILLIGRAM(S), DAILY DOSE
     Route: 048
     Dates: start: 20130901, end: 20131114
  7. ELNEOPA NO.2 [Concomitant]
     Dosage: 1000 ML MILLILITRE(S), DAILY DOSE
     Route: 042
     Dates: start: 20131004, end: 20131113
  8. PANTOSIN [Concomitant]
     Dosage: 200 MG MILLIGRAM(S), DAILY DOSE
     Route: 042
     Dates: start: 20131004, end: 20131113
  9. HUMULIN R [Concomitant]
     Dosage: 8 IU, DAILY DOSE
     Route: 042
     Dates: start: 20131004, end: 20131113
  10. LASIX [Concomitant]
     Dosage: 1 DF DOSAGE FORM, DAILY DOSE
     Route: 042
     Dates: start: 20131004, end: 20131113
  11. ALDACTONE A [Concomitant]
     Dosage: 50 MG MILLIGRAM(S), DAILY DOSE
     Route: 048
     Dates: start: 20131015, end: 20131113
  12. LASIX [Concomitant]
     Dosage: 40 MG MILLIGRAM(S), DAILY DOSE
     Route: 048
     Dates: start: 20131015, end: 20131114
  13. LAXODATE [Concomitant]
     Route: 048

REACTIONS (2)
  - Drug eruption [Unknown]
  - Interstitial lung disease [Unknown]
